FAERS Safety Report 9065910 (Version 1)
Quarter: 2013Q1

REPORT INFORMATION
  Report Type: Spontaneous
  Country: US (occurrence: US)
  Receive Date: 20130214
  Receipt Date: 20130214
  Transmission Date: 20140127
  Serious: Yes (Other)
  Sender: FDA-Public Use
  Company Number: US-SANOFI-AVENTIS-2013SA012196

PATIENT
  Age: 90 Year
  Sex: Male

DRUGS (3)
  1. LANTUS SOLOSTAR [Suspect]
     Indication: TYPE 2 DIABETES MELLITUS
     Dosage: CALLER STATES HE WAS PRESCRIBED 15 UNITS, BUT HE INCREASED HIS DOSE TO 16 UNITS DOSE:16 UNIT(S)
     Route: 051
     Dates: start: 2008
  2. SOLOSTAR [Suspect]
     Indication: TYPE 2 DIABETES MELLITUS
     Dates: start: 2008
  3. GLYBURIDE [Suspect]

REACTIONS (2)
  - Blindness [Unknown]
  - Hyperhidrosis [Unknown]
